FAERS Safety Report 16323010 (Version 3)
Quarter: 2021Q4

REPORT INFORMATION
  Report Type: Spontaneous
  Country: US (occurrence: US)
  Receive Date: 20190517
  Receipt Date: 20211222
  Transmission Date: 20220303
  Serious: No
  Sender: FDA-Public Use
  Company Number: US-LUPIN PHARMACEUTICALS INC.-2019-02524

PATIENT
  Age: 50 Year
  Sex: Male
  Weight: 79 kg

DRUGS (3)
  1. TESTOSTERONE [Suspect]
     Active Substance: TESTOSTERONE
     Indication: Androgen deficiency
     Dosage: 30 MILLIGRAM, QD (PAST 6 MONTHS)
     Route: 061
  2. TESTOSTERONE [Suspect]
     Active Substance: TESTOSTERONE
     Dosage: 30 MILLIGRAM, QD
     Route: 061
     Dates: start: 20190401, end: 20190403
  3. TESTOSTERONE [Suspect]
     Active Substance: TESTOSTERONE
     Dosage: 30 MILLIGRAM, QD
     Route: 061
     Dates: start: 20190403

REACTIONS (2)
  - Blood testosterone decreased [Recovered/Resolved]
  - Product quality issue [Unknown]

NARRATIVE: CASE EVENT DATE: 20190401
